FAERS Safety Report 12473820 (Version 5)
Quarter: 2017Q4

REPORT INFORMATION
  Report Type: Report from Study
  Country: US (occurrence: US)
  Receive Date: 20160616
  Receipt Date: 20171228
  Transmission Date: 20180320
  Serious: Yes (Other)
  Sender: FDA-Public Use
  Company Number: US-SEATTLE GENETICS-2016SGN00947

PATIENT
  Age: 47 Year
  Sex: Male
  Weight: 67.3 kg

DRUGS (31)
  1. BRENTUXIMAB VEDOTIN [Suspect]
     Active Substance: BRENTUXIMAB VEDOTIN
     Indication: ACUTE MYELOID LEUKAEMIA
     Dosage: 1.8 MG/KG, SINGLE
     Route: 042
     Dates: start: 20160525, end: 20160525
  2. ETOPOSIDE. [Suspect]
     Active Substance: ETOPOSIDE
     Indication: ACUTE MYELOID LEUKAEMIA
     Dosage: 100 UNK, UNK
     Route: 042
     Dates: start: 20160527, end: 20160531
  3. ACYCLOVIR                          /00587301/ [Concomitant]
     Active Substance: ACYCLOVIR
  4. DOCUSATE SODIUM. [Concomitant]
     Active Substance: DOCUSATE SODIUM
  5. PANTOPRAZOLE [Concomitant]
     Active Substance: PANTOPRAZOLE
  6. METOPROLOL TARTRATE. [Concomitant]
     Active Substance: METOPROLOL TARTRATE
  7. LEVOFLOXACIN. [Concomitant]
     Active Substance: LEVOFLOXACIN
  8. POSACONAZOLE [Concomitant]
     Active Substance: POSACONAZOLE
  9. OTHER THERAPEUTIC PRODUCTS [Concomitant]
     Active Substance: UNSPECIFIED INGREDIENT
  10. SODIUM BICARBONATE. [Concomitant]
     Active Substance: SODIUM BICARBONATE
  11. DEXAMETHASONE. [Concomitant]
     Active Substance: DEXAMETHASONE
  12. OXYCODONE [Concomitant]
     Active Substance: OXYCODONE
  13. MITOXANTRONE [Suspect]
     Active Substance: MITOXANTRONE HYDROCHLORIDE
     Indication: ACUTE MYELOID LEUKAEMIA
     Dosage: 10 MG/M2, QD
     Route: 042
     Dates: start: 20160527, end: 20160531
  14. CYTARABINE. [Suspect]
     Active Substance: CYTARABINE
     Indication: ACUTE MYELOID LEUKAEMIA
     Dosage: 1000 UNK, UNK
     Route: 042
     Dates: start: 20160527, end: 20160531
  15. PROCHLORPERAZINE. [Concomitant]
     Active Substance: PROCHLORPERAZINE
  16. MAGNESIUM SULFATE. [Concomitant]
     Active Substance: MAGNESIUM SULFATE
  17. TRAZODONE [Concomitant]
     Active Substance: TRAZODONE HYDROCHLORIDE
  18. DIPHENHYDRAMINE. [Concomitant]
     Active Substance: DIPHENHYDRAMINE
  19. POTASSIUM CHLORIDE. [Concomitant]
     Active Substance: POTASSIUM CHLORIDE
  20. MEROPENEM. [Concomitant]
     Active Substance: MEROPENEM
  21. AMPHOTERICIN [Concomitant]
     Active Substance: AMPHOTERICIN B
  22. ACETAMINOPHEN. [Concomitant]
     Active Substance: ACETAMINOPHEN
  23. BUPROPION. [Concomitant]
     Active Substance: BUPROPION
  24. ONDANSETRON [Concomitant]
     Active Substance: ONDANSETRON
  25. CHOLECALCIFEROL [Concomitant]
     Active Substance: CHOLECALCIFEROL
  26. FAMOTIDINE. [Concomitant]
     Active Substance: FAMOTIDINE
  27. INSULIN ASPART [Concomitant]
     Active Substance: INSULIN ASPART
  28. POLYETHYLENE GLYCOL [Concomitant]
     Active Substance: POLYETHYLENE GLYCOLS
  29. EPINEPHRINE. [Concomitant]
     Active Substance: EPINEPHRINE
  30. HYDROCORTISONE SODIUM SUCCINATE [Concomitant]
     Active Substance: HYDROCORTISONE SODIUM SUCCINATE
  31. DAPTOMYCIN. [Concomitant]
     Active Substance: DAPTOMYCIN

REACTIONS (2)
  - Infectious colitis [Unknown]
  - Enteritis infectious [Unknown]

NARRATIVE: CASE EVENT DATE: 20160605
